FAERS Safety Report 8002705-2 (Version None)
Quarter: 2011Q4

REPORT INFORMATION
  Report Type: 
  Country: None (occurrence: None)
  Receive Date: 20111222
  Receipt Date: 20111215
  Transmission Date: 20120403
  Serious: Yes (Other)
  Sender: FDA-Public Use
  Company Number: AU-MERCK-1111USA02244

PATIENT
  Age: 50 Year
  Sex: Female

DRUGS (2)
  1. PRAVASTATIN SODIUM [Suspect]
     Indication: HYPERCHOLESTEROLAEMIA
     Route: 048
  2. ZETIA [Suspect]
     Indication: HYPERCHOLESTEROLAEMIA
     Route: 048

REACTIONS (2)
  - NEUROPATHY PERIPHERAL [None]
  - ADVERSE EVENT [None]
